FAERS Safety Report 11102576 (Version 4)
Quarter: 2016Q1

REPORT INFORMATION
  Report Type: Report from Study
  Country: CA (occurrence: CA)
  Receive Date: 20150511
  Receipt Date: 20160205
  Transmission Date: 20160525
  Serious: Yes (Hospitalization)
  Sender: FDA-Public Use
  Company Number: CA-AMGEN-CANSL2015043892

PATIENT
  Age: 74 Year
  Sex: Female

DRUGS (10)
  1. CALCIUM [Concomitant]
     Active Substance: CALCIUM
  2. DOMPERIDONE                        /00498202/ [Concomitant]
     Active Substance: DOMPERIDONE MALEATE
     Dosage: 10 MG, QD
  3. MIRAPEX [Concomitant]
     Active Substance: PRAMIPEXOLE DIHYDROCHLORIDE
     Dosage: 0.5 UNK, TID
  4. VENLAFAXINE                        /01233802/ [Concomitant]
     Active Substance: VENLAFAXINE HYDROCHLORIDE
     Dosage: 37.5 MG, QD
  5. ROSUVASTATIN                       /01588602/ [Concomitant]
     Active Substance: ROSUVASTATIN CALCIUM
     Dosage: 10 MG, QD
  6. ASA [Concomitant]
     Active Substance: ASPIRIN
     Dosage: 81 MG, QD
  7. ENTACAPONE MYLAN [Concomitant]
     Active Substance: ENTACAPONE
     Dosage: 200 MG, TID
  8. LEVODOPA [Concomitant]
     Active Substance: LEVODOPA
     Dosage: 100/25MG 5 TIMES DAILY
  9. QUETIAPINE [Concomitant]
     Active Substance: QUETIAPINE
     Dosage: 12.5 MG 1/2 TAB, QD
  10. PROLIA [Suspect]
     Active Substance: DENOSUMAB
     Indication: OSTEOPOROSIS POSTMENOPAUSAL
     Dosage: 60 MG/ML, UNK
     Route: 065
     Dates: start: 20121004

REACTIONS (12)
  - Parkinson^s disease [Unknown]
  - Muscle spasms [Recovering/Resolving]
  - Paraesthesia [Recovering/Resolving]
  - Mobility decreased [Recovering/Resolving]
  - Pain [Not Recovered/Not Resolved]
  - Pruritus [Not Recovered/Not Resolved]
  - Feeling hot [Recovering/Resolving]
  - Musculoskeletal stiffness [Not Recovered/Not Resolved]
  - Activities of daily living impaired [Unknown]
  - Burning sensation [Unknown]
  - Asthenia [Not Recovered/Not Resolved]
  - Abdominal pain upper [Not Recovered/Not Resolved]

NARRATIVE: CASE EVENT DATE: 20150528
